FAERS Safety Report 22601980 (Version 1)
Quarter: 2023Q2

REPORT INFORMATION
  Report Type: Spontaneous
  Country: US (occurrence: US)
  Receive Date: 20230614
  Receipt Date: 20230614
  Transmission Date: 20230722
  Serious: Yes (Life-Threatening, Hospitalization, Other)
  Sender: FDA-Public Use
  Company Number: US-BRACCO-2023US02825

PATIENT
  Age: 32 Year
  Sex: Female

DRUGS (6)
  1. LUMASON [Suspect]
     Active Substance: SULFUR HEXAFLUORIDE
     Indication: Echocardiogram
     Dosage: 2 ML, SINGLE
     Route: 042
     Dates: start: 20230605, end: 20230605
  2. LUMASON [Suspect]
     Active Substance: SULFUR HEXAFLUORIDE
     Indication: Echocardiogram
     Dosage: 2 ML, SINGLE
     Route: 042
     Dates: start: 20230605, end: 20230605
  3. LUMASON [Suspect]
     Active Substance: SULFUR HEXAFLUORIDE
     Indication: Echocardiogram
     Dosage: 2 ML, SINGLE
     Route: 042
     Dates: start: 20230605, end: 20230605
  4. LUMASON [Suspect]
     Active Substance: SULFUR HEXAFLUORIDE
     Dosage: 2 ML, SINGLE
     Route: 042
     Dates: start: 20230605, end: 20230605
  5. LUMASON [Suspect]
     Active Substance: SULFUR HEXAFLUORIDE
     Dosage: 2 ML, SINGLE
     Route: 042
     Dates: start: 20230605, end: 20230605
  6. LUMASON [Suspect]
     Active Substance: SULFUR HEXAFLUORIDE
     Dosage: 2 ML, SINGLE
     Route: 042
     Dates: start: 20230605, end: 20230605

REACTIONS (5)
  - Loss of consciousness [Unknown]
  - Pulse absent [Unknown]
  - Dyspnoea [Unknown]
  - Erythema [Unknown]
  - Vomiting [Unknown]

NARRATIVE: CASE EVENT DATE: 20230605
